FAERS Safety Report 9431537 (Version 1)
Quarter: 2013Q3

REPORT INFORMATION
  Report Type: Spontaneous
  Country: JP (occurrence: JP)
  Receive Date: 20130731
  Receipt Date: 20130731
  Transmission Date: 20140515
  Serious: Yes (Hospitalization)
  Sender: FDA-Public Use
  Company Number: JP-ROCHE-1254804

PATIENT
  Age: 90 Year
  Sex: Female

DRUGS (1)
  1. MIRCERA [Suspect]
     Indication: RENAL FAILURE CHRONIC
     Route: 058
     Dates: start: 20130501, end: 20130726

REACTIONS (1)
  - Dementia [Unknown]
